FAERS Safety Report 6640058-2 (Version None)
Quarter: 2010Q1

REPORT INFORMATION
  Report Type: 
  Country: None (occurrence: None)
  Receive Date: 20100318
  Receipt Date: 20100309
  Transmission Date: 20100710
  Serious: Yes (Hospitalization)
  Sender: FDA-Public Use
  Company Number: CH-SANOFI-AVENTIS-2010SA013475

PATIENT
  Age: 70 Year
  Sex: Male
  Weight: 135 kg

DRUGS (13)
  1. LASIX [Suspect]
     Route: 040
     Dates: start: 20091231, end: 20100115
  2. ALDACTONE [Suspect]
     Route: 048
     Dates: start: 20091231, end: 20100105
  3. TORASEMIDE [Concomitant]
     Route: 048
     Dates: start: 20100119
  4. KONAKION [Concomitant]
     Route: 040
     Dates: start: 20100107, end: 20100107
  5. LAXOBERON [Concomitant]
     Route: 048
     Dates: start: 20100107
  6. LISINOPRIL [Concomitant]
     Route: 048
     Dates: start: 20091231, end: 20100112
  7. LISINOPRIL [Concomitant]
     Route: 048
     Dates: start: 20100210
  8. ASPIRIN [Concomitant]
     Dates: start: 20090701
  9. GLUCOPHAGE [Concomitant]
     Dosage: DURATION : YEARS
  10. GLUCOPHAGE [Concomitant]
     Dates: start: 20100201
  11. BELOC ZOK [Concomitant]
     Route: 048
  12. PLAVIX [Concomitant]
     Route: 048
     Dates: start: 20090101, end: 20100112
  13. ATORVASTATIN CALCIUM [Concomitant]

REACTIONS (3)
  - ERYTHEMA [None]
  - PRURITUS [None]
  - SKIN NECROSIS [None]
